FAERS Safety Report 14001638 (Version 3)
Quarter: 2017Q4

REPORT INFORMATION
  Report Type: Spontaneous
  Country: JP (occurrence: JP)
  Receive Date: 20170922
  Receipt Date: 20171009
  Transmission Date: 20180321
  Serious: Yes (Death, Hospitalization)
  Sender: FDA-Public Use
  Company Number: PHJP2017JP028738

PATIENT
  Age: 83 Year
  Sex: Male
  Weight: 59.9 kg

DRUGS (12)
  1. THEO-DUR [Concomitant]
     Active Substance: THEOPHYLLINE ANHYDROUS
     Indication: ASTHMA
     Dosage: 100 MG, BID
     Route: 048
     Dates: end: 20170818
  2. ONON [Concomitant]
     Active Substance: PRANLUKAST
     Indication: ASTHMA
     Dosage: 112.5 MG, BID
     Route: 048
     Dates: end: 20170818
  3. KREMEZIN [Concomitant]
     Active Substance: ACTIVATED CHARCOAL
     Indication: CHRONIC KIDNEY DISEASE
     Dosage: 2 G, BID
     Route: 048
     Dates: end: 20170818
  4. NEXIUM [Concomitant]
     Active Substance: ESOMEPRAZOLE MAGNESIUM
     Indication: PRODUCT USED FOR UNKNOWN INDICATION
     Dosage: 20 MG, UNK
     Route: 065
     Dates: start: 20170816
  5. VOTRIENT [Suspect]
     Active Substance: PAZOPANIB HYDROCHLORIDE
     Indication: RENAL CELL CARCINOMA
     Dosage: 800 MG, QD
     Route: 048
     Dates: start: 20170808, end: 20170816
  6. DIART [Concomitant]
     Active Substance: AZOSEMIDE
     Indication: CHRONIC KIDNEY DISEASE
     Dosage: 30 MG, QD
     Route: 048
     Dates: end: 20170818
  7. FLUTIFORM [Concomitant]
     Active Substance: FLUTICASONE PROPIONATE\FORMOTEROL FUMARATE
     Indication: ASTHMA
     Dosage: 2 DF, BID
     Route: 055
     Dates: end: 20170818
  8. CEPHADOL [Concomitant]
     Active Substance: DIPHENIDOL HYDROCHLORIDE
     Indication: DIZZINESS
     Dosage: 25 MG, QD
     Route: 048
     Dates: end: 20170818
  9. URSO [Concomitant]
     Active Substance: URSODIOL
     Indication: CHOLESTASIS
     Dosage: 100 MG, TID
     Route: 048
     Dates: start: 20170814, end: 20170818
  10. VOTRIENT [Suspect]
     Active Substance: PAZOPANIB HYDROCHLORIDE
     Dosage: 600 MG, UNK
     Route: 048
     Dates: start: 20170817, end: 20170818
  11. MEILAX [Concomitant]
     Active Substance: ETHYL LOFLAZEPATE
     Indication: INSOMNIA
     Dosage: 1 MG, BID
     Route: 048
     Dates: end: 20170818
  12. HARNAL [Concomitant]
     Active Substance: TAMSULOSIN HYDROCHLORIDE
     Indication: BENIGN PROSTATIC HYPERPLASIA
     Dosage: 0.2 MG, QD
     Route: 048
     Dates: end: 20170818

REACTIONS (9)
  - Disseminated intravascular coagulation [Fatal]
  - Hepatic function abnormal [Fatal]
  - Tumour lysis syndrome [Fatal]
  - Blood bilirubin increased [Fatal]
  - Alanine aminotransferase increased [Fatal]
  - Hepatitis fulminant [Fatal]
  - Decreased appetite [Fatal]
  - Hepatic failure [Fatal]
  - Aspartate aminotransferase increased [Fatal]

NARRATIVE: CASE EVENT DATE: 20170817
